FAERS Safety Report 4349752-X (Version None)
Quarter: 2004Q2

REPORT INFORMATION
  Report Type: 
  Country: None (occurrence: None)
  Receive Date: 20040426
  Receipt Date: 20040412
  Transmission Date: 20050107
  Serious: Yes (Other)
  Sender: FDA-Public Use
  Company Number: 2003126164

PATIENT
  Age: 76 Year
  Sex: Male

DRUGS (4)
  1. TIKOSYN [Suspect]
     Indication: ATRIAL FIBRILLATION
     Dosage: TWICE DAILY, ORAL
     Route: 048
     Dates: start: 20020101
  2. WARFARIN SODIUM [Concomitant]
  3. PHOSPHATIDYL SERINE (PHOSPHATIDYL SERINE) [Concomitant]
  4. FLUDROCORTISONE ACETATE (FLUDROCORTISONE ACETATE) [Concomitant]

REACTIONS (2)
  - MEMORY IMPAIRMENT [None]
  - SYNCOPE [None]
